FAERS Safety Report 22196241 (Version 1)
Quarter: 2023Q2

REPORT INFORMATION
  Report Type: Spontaneous
  Country: PT (occurrence: PT)
  Receive Date: 20230411
  Receipt Date: 20230411
  Transmission Date: 20230722
  Serious: Yes (Other)
  Sender: FDA-Public Use
  Company Number: PT-AUROBINDO-AUR-APL-2018-009282

PATIENT
  Age: 67 Year
  Sex: Female

DRUGS (7)
  1. DOCETAXEL [Suspect]
     Active Substance: DOCETAXEL
     Indication: Invasive ductal breast carcinoma
     Dosage: UNK, 3 WEEKS (INFUSION)
     Route: 065
     Dates: start: 2014
  2. EPIRUBICIN [Suspect]
     Active Substance: EPIRUBICIN
     Indication: Invasive ductal breast carcinoma
     Dosage: UNK (THREE INITIAL CYCLES) 3 WEEKS
     Route: 065
     Dates: start: 2014
  3. EPIRUBICIN [Suspect]
     Active Substance: EPIRUBICIN
     Dosage: UNK 3 WEEKS
     Route: 065
  4. CYCLOPHOSPHAMIDE [Suspect]
     Active Substance: CYCLOPHOSPHAMIDE
     Indication: Invasive ductal breast carcinoma
     Dosage: UNK 3 WEEKS (THREE INITIAL CYCLES)
     Route: 065
     Dates: start: 2014
  5. CYCLOPHOSPHAMIDE [Suspect]
     Active Substance: CYCLOPHOSPHAMIDE
     Dosage: UNK
     Route: 065
  6. FLUOROURACIL [Suspect]
     Active Substance: FLUOROURACIL
     Indication: Invasive ductal breast carcinoma
     Dosage: UNK 3 WEEKS(THREE INITIAL CYCLES)
     Route: 065
     Dates: start: 2014
  7. FLUOROURACIL [Suspect]
     Active Substance: FLUOROURACIL
     Dosage: UNK 3 WEEK
     Route: 065

REACTIONS (5)
  - Rash [Recovered/Resolved]
  - Skin exfoliation [Recovered/Resolved]
  - Psoriasis [Recovered/Resolved]
  - Skin lesion [Recovering/Resolving]
  - Skin plaque [Recovering/Resolving]

NARRATIVE: CASE EVENT DATE: 20140101
